FAERS Safety Report 7278789-6 (Version None)
Quarter: 2011Q1

REPORT INFORMATION
  Report Type: 
  Country: None (occurrence: None)
  Receive Date: 20110207
  Receipt Date: 20110125
  Transmission Date: 20110831
  Serious: Yes (Hospitalization, Other)
  Sender: FDA-Public Use
  Company Number: JP-CELGENEUS-087-21880-11012560

PATIENT
  Sex: Male
  Weight: 54.2 kg

DRUGS (9)
  1. DIGOSIN [Concomitant]
     Route: 048
  2. ASPIRIN [Concomitant]
     Route: 048
  3. GURAK [Concomitant]
     Route: 048
  4. ITOROL [Concomitant]
     Route: 048
  5. CRAVIT [Concomitant]
     Indication: PROPHYLAXIS
     Route: 048
     Dates: start: 20100918, end: 20100924
  6. PRIMOBOLAN [Concomitant]
     Route: 048
  7. REVLIMID [Suspect]
     Route: 048
     Dates: start: 20100913, end: 20101003
  8. OMEPRAL [Concomitant]
     Route: 048
  9. EXJADE [Concomitant]
     Route: 048

REACTIONS (5)
  - BLOOD IMMUNOGLOBULIN E INCREASED [None]
  - NEUTROPENIA [None]
  - EOSINOPHIL COUNT INCREASED [None]
  - THROMBOCYTOPENIA [None]
  - DRUG ERUPTION [None]
